APPROVED DRUG PRODUCT: NUVESSA
Active Ingredient: METRONIDAZOLE
Strength: 1.3%
Dosage Form/Route: GEL;VAGINAL
Application: N205223 | Product #001
Applicant: CHEMO RESEARCH SL
Approved: Mar 24, 2014 | RLD: Yes | RS: Yes | Type: RX

PATENTS:
Patent 9198858 | Expires: Jun 28, 2032
Patent 8658678 | Expires: Jun 27, 2028
Patent 8946276 | Expires: Jun 28, 2032
Patent 7893097 | Expires: Feb 19, 2028
Patent 8877792 | Expires: Feb 2, 2028
Patent 10238634 | Expires: Jun 28, 2032
Patent 10596155 | Expires: Jun 28, 2032